FAERS Safety Report 9643997 (Version 1)
Quarter: 2013Q4

REPORT INFORMATION
  Report Type: Spontaneous
  Country: IT (occurrence: IT)
  Receive Date: 20131024
  Receipt Date: 20131024
  Transmission Date: 20140711
  Serious: Yes (Other)
  Sender: FDA-Public Use
  Company Number: IT-MYLANLABS-2013S1023205

PATIENT
  Age: 82 Year
  Sex: Male

DRUGS (5)
  1. SOTALOL [Suspect]
     Indication: PRODUCT USED FOR UNKNOWN INDICATION
     Dates: start: 20120817, end: 20130816
  2. COTAREG [Suspect]
     Indication: PRODUCT USED FOR UNKNOWN INDICATION
     Dates: start: 20120817, end: 20130816
  3. LASIX [Suspect]
     Indication: PRODUCT USED FOR UNKNOWN INDICATION
     Dates: start: 20120817, end: 20130816
  4. LASITONE [Suspect]
     Indication: PRODUCT USED FOR UNKNOWN INDICATION
  5. OMNIC [Suspect]
     Indication: PRODUCT USED FOR UNKNOWN INDICATION
     Dates: start: 20120817, end: 20130816

REACTIONS (1)
  - Hypotension [Recovering/Resolving]
